FAERS Safety Report 20900409 (Version 1)
Quarter: 2022Q2

REPORT INFORMATION
  Report Type: Spontaneous
  Country: US (occurrence: None)
  Receive Date: 20220531
  Receipt Date: 20220531
  Transmission Date: 20220721
  Serious: No
  Sender: FDA-Public Use
  Company Number: None

PATIENT
  Sex: Female

DRUGS (1)
  1. OTEZLA [Suspect]
     Active Substance: APREMILAST
     Indication: Ankylosing spondylitis
     Dosage: OTHER QUANTITY : 10MG, 20MG, 30MG;?FREQUENCY : AS DIRECTED;?
     Route: 048
     Dates: start: 20220525, end: 20220530

REACTIONS (2)
  - Muscle spasms [None]
  - Diarrhoea [None]
